FAERS Safety Report 24641750 (Version 3)
Quarter: 2025Q3

REPORT INFORMATION
  Report Type: Report from Study
  Country: US (occurrence: US)
  Receive Date: 20241120
  Receipt Date: 20250802
  Transmission Date: 20251020
  Serious: Yes (Hospitalization)
  Sender: ALEXION PHARMACEUTICALS
  Company Number: US-AstraZeneca-CH-00746474A

PATIENT
  Sex: Female

DRUGS (1)
  1. ULTOMIRIS [Suspect]
     Active Substance: RAVULIZUMAB-CWVZ
     Indication: Myasthenia gravis
     Route: 065

REACTIONS (8)
  - General physical health deterioration [Unknown]
  - Fluid retention [Recovered/Resolved]
  - Muscle spasms [Recovered/Resolved]
  - Blood pressure increased [Unknown]
  - Chest discomfort [Unknown]
  - Nausea [Recovered/Resolved]
  - Dysphagia [Unknown]
  - Vomiting [Recovered/Resolved]
